FAERS Safety Report 9606680 (Version 2)
Quarter: 2013Q4

REPORT INFORMATION
  Report Type: Spontaneous
  Country: US (occurrence: US)
  Receive Date: 20131008
  Receipt Date: 20131008
  Transmission Date: 20140711
  Serious: No
  Sender: FDA-Public Use
  Company Number: US-AMGEN-USASP2013061768

PATIENT
  Age: 77 Year
  Sex: Female
  Weight: 69.39 kg

DRUGS (18)
  1. PROLIA [Suspect]
     Indication: OSTEOPOROSIS POSTMENOPAUSAL
     Dosage: 60 MG, Q6MO
     Route: 058
     Dates: start: 20130820
  2. VITAMIN D3 [Concomitant]
     Dosage: 2000 UNIT, UNK
     Route: 048
  3. CENTRUM SILVER                     /02363801/ [Concomitant]
  4. MAGNESIUM OXIDE [Concomitant]
     Dosage: 250 MG, UNK
     Route: 048
  5. SPIRONOLACTONE [Concomitant]
     Dosage: 25 MG, QD
     Dates: start: 20081021
  6. TERAZIN [Concomitant]
     Dosage: 5 MG, QD
     Route: 048
     Dates: start: 20080811
  7. CARVEDILOL [Concomitant]
     Dosage: 12.5 MG, BID
     Route: 048
     Dates: start: 20110526
  8. BABY ASPIRIN [Concomitant]
     Dosage: 81 MG, QD
     Route: 048
     Dates: start: 20081021
  9. ALLOPURINOL [Concomitant]
     Dosage: 300 MG, QD
     Route: 048
     Dates: start: 20091207
  10. SANCTURA [Concomitant]
     Dosage: 20 MG, QD
     Route: 048
     Dates: start: 20120417
  11. NITROFURANTOIN [Concomitant]
     Indication: CYSTITIS
     Dosage: 50 MG, QD
     Route: 048
     Dates: start: 20111107
  12. CYCLOBENZAPRINE HYDROCHLORIDE [Concomitant]
     Dosage: 5 MG, TID
     Route: 048
     Dates: start: 20130812
  13. LOTRISONE [Concomitant]
     Dosage: UNK
     Dates: start: 20081021
  14. DICLOFENAC SODIUM [Concomitant]
     Dosage: 75 MG, BID
     Route: 048
     Dates: start: 20130812
  15. FAMOTIN [Concomitant]
     Dosage: 20 MG, BID
     Route: 048
     Dates: start: 20081021
  16. SLOW FE [Concomitant]
     Dosage: UNK UNK, QD
  17. MULTIVITAMIN                       /00097801/ [Concomitant]
     Dosage: UNK
     Dates: start: 20081021
  18. CALCIUM [Concomitant]
     Dosage: UNK UNK, BID
     Route: 048

REACTIONS (1)
  - Diarrhoea [Recovered/Resolved]
